FAERS Safety Report 10045552 (Version 1)
Quarter: 2014Q1

REPORT INFORMATION
  Report Type: Spontaneous
  Country: GB (occurrence: GB)
  Receive Date: 20140328
  Receipt Date: 20140328
  Transmission Date: 20141002
  Serious: Yes (Other)
  Sender: FDA-Public Use
  Company Number: PHHY2014GB034442

PATIENT
  Sex: Female

DRUGS (2)
  1. CO-CODAMOL [Suspect]
     Route: 065
     Dates: start: 201206
  2. LYRICA [Interacting]
     Route: 065
     Dates: start: 201206

REACTIONS (3)
  - Cardiac arrest [Unknown]
  - Large intestine perforation [Unknown]
  - Drug interaction [Unknown]
